FAERS Safety Report 9921343 (Version 2)
Quarter: 2014Q2

REPORT INFORMATION
  Report Type: Report from Study
  Country: FR (occurrence: FR)
  Receive Date: 20140225
  Receipt Date: 20140425
  Transmission Date: 20141212
  Serious: Yes (Hospitalization)
  Sender: FDA-Public Use
  Company Number: FR-ROCHE-1352731

PATIENT
  Age: 78 Year
  Sex: Male

DRUGS (15)
  1. BEVACIZUMAB [Suspect]
     Indication: COLON CANCER METASTATIC
     Dosage: 34 COURSES (ON DAY 1 - ON DAY 15)
     Route: 041
     Dates: start: 20120801, end: 20131218
  2. IRINOTECAN HYDROCHLORIDE [Suspect]
     Indication: COLON CANCER METASTATIC
     Dosage: 34 COURSES (ON DAY 1 - ON DAY 15), ACCORD
     Route: 041
     Dates: start: 20120801, end: 20131218
  3. FLUOROURACIL [Suspect]
     Indication: COLON CANCER METASTATIC
     Dosage: 50 MG/ML, 34 COURSES
     Route: 040
     Dates: start: 20120801, end: 20131218
  4. FLUOROURACIL [Suspect]
     Route: 041
     Dates: start: 20131219
  5. FOLINIC ACID [Suspect]
     Indication: COLON CANCER METASTATIC
     Route: 048
  6. AMLODIPINE [Concomitant]
     Route: 065
  7. GLIMEPIRIDE [Concomitant]
     Route: 065
  8. PERMIXON [Concomitant]
     Dosage: 160
     Route: 065
  9. UROREC [Concomitant]
     Dosage: 4
     Route: 065
  10. EUCREAS [Concomitant]
     Dosage: 50/100
     Route: 065
  11. FOLIC ACID [Concomitant]
  12. APREPITANT [Concomitant]
  13. ONDANSETRON [Concomitant]
  14. METHYLPREDNISOLONE [Concomitant]
  15. ATROPINE [Concomitant]

REACTIONS (2)
  - Ejection fraction decreased [Not Recovered/Not Resolved]
  - Pulmonary arterial hypertension [Not Recovered/Not Resolved]
